FAERS Safety Report 19415661 (Version 1)
Quarter: 2021Q2

REPORT INFORMATION
  Report Type: Spontaneous
  Country: US (occurrence: US)
  Receive Date: 20210615
  Receipt Date: 20210615
  Transmission Date: 20210717
  Serious: No
  Sender: FDA-Public Use
  Company Number: US-TORRENT-00011123

PATIENT
  Age: 36 Year
  Sex: Male
  Weight: 99 kg

DRUGS (2)
  1. CITALOPRAM HYDROBROMIDE TABLETS [Suspect]
     Active Substance: CITALOPRAM HYDROBROMIDE
     Indication: ANXIETY
     Dosage: 1 TABLET BY MOUTH DAILY
     Dates: start: 20210107
  2. QUETIAPINE. [Concomitant]
     Active Substance: QUETIAPINE
     Indication: PRODUCT USED FOR UNKNOWN INDICATION
     Dosage: 50 MG DAILY
     Dates: start: 20210301

REACTIONS (4)
  - Anger [Recovering/Resolving]
  - Energy increased [Recovering/Resolving]
  - Euphoric mood [Recovering/Resolving]
  - Hyperarousal [Recovering/Resolving]

NARRATIVE: CASE EVENT DATE: 20210223
